FAERS Safety Report 25779085 (Version 2)
Quarter: 2025Q4

REPORT INFORMATION
  Report Type: Spontaneous
  Country: GB (occurrence: GB)
  Receive Date: 20250909
  Receipt Date: 20251113
  Transmission Date: 20260117
  Serious: Yes (Death, Other)
  Sender: PFIZER
  Company Number: None

PATIENT
  Age: 59 Year
  Sex: Male

DRUGS (1)
  1. GEMTUZUMAB OZOGAMICIN [Suspect]
     Active Substance: GEMTUZUMAB OZOGAMICIN
     Indication: Acute myeloid leukaemia
     Dosage: UNK
     Dates: start: 20250819

REACTIONS (8)
  - Venoocclusive liver disease [Fatal]
  - Acute hepatic failure [Fatal]
  - Acute myeloid leukaemia [Fatal]
  - Malignant neoplasm progression [Fatal]
  - Pancytopenia [Fatal]
  - Coagulopathy [Unknown]
  - Hepatic encephalopathy [Unknown]
  - Hepatic function abnormal [Unknown]

NARRATIVE: CASE EVENT DATE: 20250801
